FAERS Safety Report 4342519-8 (Version None)
Quarter: 2004Q2

REPORT INFORMATION
  Report Type: 
  Country: None (occurrence: None)
  Receive Date: 20040414
  Receipt Date: 20040329
  Transmission Date: 20050107
  Serious: Yes (Hospitalization)
  Sender: FDA-Public Use
  Company Number: 601188

PATIENT
  Age: 47 Year
  Sex: Female
  Weight: 117.028 kg

DRUGS (12)
  1. GAMMAGARD S/D [Suspect]
     Indication: MYASTHENIA GRAVIS
     Dosage: 50 GM; BIW; INTRAVENOUS
     Route: 042
     Dates: start: 20040322, end: 20040323
  2. ALTACE [Concomitant]
  3. BROMIDE [Concomitant]
  4. MESTINON [Concomitant]
  5. IMURAN [Concomitant]
  6. GLUCOVANCE [Concomitant]
  7. VIOXX [Concomitant]
  8. WELLBUTRIN [Concomitant]
  9. AMITRIPTYLINE HCL [Concomitant]
  10. AMANTADINE HCL [Concomitant]
  11. BENADRYL [Concomitant]
  12. TYLENOL (CAPLET) [Concomitant]

REACTIONS (1)
  - PULMONARY EMBOLISM [None]
